FAERS Safety Report 9951231 (Version 1)
Quarter: 2014Q1

REPORT INFORMATION
  Report Type: Report from Study
  Country: US (occurrence: US)
  Receive Date: 20140304
  Receipt Date: 20140304
  Transmission Date: 20141002
  Serious: No
  Sender: FDA-Public Use
  Company Number: US-ABBVIE-13P-163-1067069-00

PATIENT
  Age: 58 Year
  Sex: Male

DRUGS (8)
  1. HUMIRA [Suspect]
     Indication: CROHN^S DISEASE
     Dates: start: 20130214
  2. OVER THE COUNTER ACID REDUCING MEDICINE [Concomitant]
     Indication: CROHN^S DISEASE
  3. CIALIS [Concomitant]
     Indication: CROHN^S DISEASE
  4. MERCAPTOPURINE [Concomitant]
     Indication: CROHN^S DISEASE
  5. METRONIDAZOLE [Concomitant]
     Indication: CROHN^S DISEASE
  6. CLOTRIMAZOLE [Concomitant]
     Indication: CROHN^S DISEASE
  7. VITAMIN C [Concomitant]
     Indication: CROHN^S DISEASE
  8. MULTI VITAMIN [Concomitant]
     Indication: CROHN^S DISEASE

REACTIONS (3)
  - Injection site erythema [Not Recovered/Not Resolved]
  - Injection site pruritus [Not Recovered/Not Resolved]
  - Injection site rash [Not Recovered/Not Resolved]
